FAERS Safety Report 9468725 (Version 3)
Quarter: 2014Q1

REPORT INFORMATION
  Report Type: Spontaneous
  Country: US (occurrence: None)
  Receive Date: 20130814
  Receipt Date: 20140311
  Transmission Date: 20141002
  Serious: Yes (Hospitalization)
  Sender: FDA-Public Use
  Company Number: AEGR000096

PATIENT
  Age: 56 Year
  Sex: Male
  Weight: 77.1 kg

DRUGS (8)
  1. JUXTAPID [Suspect]
     Indication: TYPE IIA HYPERLIPIDAEMIA
     Route: 048
     Dates: start: 20130313, end: 2013
  2. SEROQUEL (QUETIAPINE FUMARATE) [Concomitant]
  3. CLONAZEPAM (CLONAZEPAM) [Concomitant]
  4. ALPRAZOLAM (ALPRAZOLAM) [Concomitant]
  5. METOPROLOL TARTRATE (METOPROLOL TARTRATE) [Concomitant]
  6. ASPIRIN (ACETYISALICYLIC ACID) [Concomitant]
  7. CYMBALTA [Concomitant]
  8. OXYCODONE (OXYCODONE) [Concomitant]

REACTIONS (5)
  - Nephrolithiasis [None]
  - Vomiting [None]
  - Diarrhoea [None]
  - Influenza like illness [None]
  - Sinusitis [None]
